FAERS Safety Report 19084821 (Version 1)
Quarter: 2021Q2

REPORT INFORMATION
  Report Type: Report from Study
  Country: GB (occurrence: GB)
  Receive Date: 20210401
  Receipt Date: 20210401
  Transmission Date: 20210717
  Serious: Yes (Other)
  Sender: FDA-Public Use
  Company Number: GB-TAKEDA-GB201835488

PATIENT

DRUGS (2)
  1. VELAGLUCERASE ALFA [Suspect]
     Active Substance: VELAGLUCERASE ALFA
     Dosage: 61.5 IU/KG, 1X/2WKS
     Route: 065
     Dates: start: 20171120
  2. VELAGLUCERASE ALFA [Suspect]
     Active Substance: VELAGLUCERASE ALFA
     Indication: GAUCHER^S DISEASE
     Dosage: 53.8 IU/KG, 1X/2WKS
     Route: 065
     Dates: start: 20170603, end: 20171119

REACTIONS (1)
  - Bronchiectasis [Unknown]

NARRATIVE: CASE EVENT DATE: 20180706
